FAERS Safety Report 25636285 (Version 1)
Quarter: 2025Q3

REPORT INFORMATION
  Report Type: Spontaneous
  Country: EU (occurrence: EU)
  Receive Date: 20250803
  Receipt Date: 20250803
  Transmission Date: 20251020
  Serious: Yes (Other)
  Sender: UCB
  Company Number: EU-UCBSA-2025046628

PATIENT
  Sex: Female

DRUGS (4)
  1. LACOSAMIDE [Suspect]
     Active Substance: LACOSAMIDE
     Indication: Lennox-Gastaut syndrome
     Dosage: 200 MILLIGRAM, 2X/DAY (BID)
  2. VALPROIC ACID [Concomitant]
     Active Substance: VALPROIC ACID
     Indication: Lennox-Gastaut syndrome
     Dosage: 500 MILLIGRAM, 2X/DAY (BID)
  3. PERAMPANEL [Concomitant]
     Active Substance: PERAMPANEL
     Indication: Lennox-Gastaut syndrome
     Dosage: 12 MILLIGRAM, ONCE DAILY (QD)
  4. TOPIRAMATE [Concomitant]
     Active Substance: TOPIRAMATE
     Indication: Lennox-Gastaut syndrome
     Dosage: 50 MILLIGRAM, ONCE DAILY (QD)

REACTIONS (5)
  - Myoclonic epilepsy [Unknown]
  - Tonic convulsion [Unknown]
  - Atonic seizures [Unknown]
  - Fatigue [Unknown]
  - Off label use [Unknown]
